FAERS Safety Report 4553202-8 (Version None)
Quarter: 2005Q1

REPORT INFORMATION
  Report Type: 
  Country: None (occurrence: None)
  Receive Date: 20050113
  Receipt Date: 20050103
  Transmission Date: 20050727
  Serious: Yes (Hospitalization, Other)
  Sender: FDA-Public Use
  Company Number: 2004077456

PATIENT
  Age: 81 Year
  Sex: Male
  Weight: 124.7392 kg

DRUGS (17)
  1. TIKOSYN [Suspect]
     Indication: ATRIAL FIBRILLATION
     Dosage: 1000 MCG (500 MCG, 2 IN 1 D), ORAL
     Route: 048
     Dates: start: 20031201
  2. MAGNESIUM OXIDE (MAGNESIUM OXIDE) [Concomitant]
  3. SIMVASTATIN [Concomitant]
  4. METOPROLOL TARTRATE [Concomitant]
  5. POTASSIUM CHLORIDE [Concomitant]
  6. FUROSEMIDE (FUROSEMIDE) [Concomitant]
  7. LOSARTAN (LOSARTAN) [Concomitant]
  8. TEMAZEPAM [Concomitant]
  9. ALL OTHER THERAPEUTIC PRODUCTS (ALL OTHER THERAPEUTIC PRODUCTS) [Concomitant]
  10. VICODIN [Concomitant]
  11. ONDANSETRON HCL [Concomitant]
  12. GALENIC /GLUCOSE/SODIUM CL/POTASSIUM CL/ (GLUCOSE, POTASSIUM CHLORIDE, [Concomitant]
  13. LEVOFLOXACIN [Concomitant]
  14. METOPROLOL SUCCINATE [Concomitant]
  15. LOSARTAN POTASSIUM [Concomitant]
  16. MULTIVITAMINS (ASCORBIC ACID,ERGOCALCIFEROL, FOLIC ACID, NICOTINAMIDE, [Concomitant]
  17. OXYGEN (OXYGEN) [Concomitant]

REACTIONS (13)
  - BLOOD PRESSURE INCREASED [None]
  - BRONCHOSPASM [None]
  - CARDIAC FAILURE CONGESTIVE [None]
  - CARDIAC MURMUR [None]
  - CAROTID BRUIT [None]
  - CHRONIC OBSTRUCTIVE PULMONARY DISEASE [None]
  - ELECTROCARDIOGRAM QT CORRECTED INTERVAL PROLONGED [None]
  - ELECTROCARDIOGRAM QT PROLONGED [None]
  - FLUID OVERLOAD [None]
  - POST PROCEDURAL COMPLICATION [None]
  - PROSTATECTOMY [None]
  - RADICAL PROSTATECTOMY [None]
  - WHEEZING [None]
